FAERS Safety Report 23778988 (Version 2)
Quarter: 2024Q2

REPORT INFORMATION
  Report Type: Spontaneous
  Country: US (occurrence: US)
  Receive Date: 20240424
  Receipt Date: 20240430
  Transmission Date: 20240715
  Serious: Yes (Hospitalization, Other)
  Sender: FDA-Public Use
  Company Number: US-MLMSERVICE-20240415-PI017618-00201-1

PATIENT
  Age: 38 Year
  Sex: Female

DRUGS (8)
  1. LIDOCAINE HYDROCHLORIDE [Suspect]
     Active Substance: LIDOCAINE HYDROCHLORIDE
     Indication: Local anaesthesia
     Dosage: AUTO BOLUS 15ML EVERY 2 HOURS
  2. LIDOCAINE HYDROCHLORIDE [Suspect]
     Active Substance: LIDOCAINE HYDROCHLORIDE
     Dosage: DEMAND BOLUS 10ML EVERY 30 MINUTES
  3. LIDOCAINE HYDROCHLORIDE [Suspect]
     Active Substance: LIDOCAINE HYDROCHLORIDE
     Dosage: ONLY ONE DEMAND BOLUS DELIVERED ON POD 3
  4. EPINEPHRINE [Concomitant]
     Active Substance: EPINEPHRINE
     Indication: Pulmonary hypertension
     Dosage: 0.08 UG/KG EVERY 1 MINUTE, INFUSION
  5. EPINEPHRINE [Concomitant]
     Active Substance: EPINEPHRINE
     Dosage: REDUCED TO 0.01 UG/KG/MIN ON POD 2, INFUSION
  6. NITRIC OXIDE [Concomitant]
     Active Substance: NITRIC OXIDE
     Dosage: ON POD 3 TAPERED
     Route: 055
  7. NITRIC OXIDE [Concomitant]
     Active Substance: NITRIC OXIDE
     Dosage: 20PPM OF INHALED NITRIC OXIDE (INO)
     Route: 055
  8. NITRIC OXIDE [Concomitant]
     Active Substance: NITRIC OXIDE
     Dosage: ON POD 2 TAPERED
     Route: 055

REACTIONS (4)
  - Drug level increased [Recovered/Resolved]
  - Local anaesthetic systemic toxicity [Recovered/Resolved]
  - Cardiovascular insufficiency [Recovered/Resolved]
  - Blood pressure systolic increased [Recovered/Resolved]
